FAERS Safety Report 7894389-9 (Version None)
Quarter: 2011Q4

REPORT INFORMATION
  Report Type: 
  Country: None (occurrence: None)
  Receive Date: 20111104
  Receipt Date: 20111026
  Transmission Date: 20120403
  Serious: Yes (Other)
  Sender: FDA-Public Use
  Company Number: GB-ASTRAZENECA-2011SE64855

PATIENT

DRUGS (2)
  1. PULMICORT [Suspect]
     Route: 055
  2. PULMICORT [Suspect]
     Route: 055

REACTIONS (10)
  - ATRIAL FIBRILLATION [None]
  - PNEUMONIA [None]
  - CANDIDIASIS [None]
  - ASTHMA [None]
  - NASOPHARYNGITIS [None]
  - ARRHYTHMIA [None]
  - BRONCHITIS [None]
  - CARDIAC DISORDER [None]
  - THERAPY CESSATION [None]
  - COUGH [None]
